FAERS Safety Report 5718375-X (Version None)
Quarter: 2008Q2

REPORT INFORMATION
  Report Type: 
  Country: None (occurrence: None)
  Receive Date: 20080425
  Receipt Date: 20080417
  Transmission Date: 20081010
  Serious: Yes (Hospitalization)
  Sender: FDA-Public Use
  Company Number: FR-ELI_LILLY_AND_COMPANY-FR200802001083

PATIENT
  Age: 76 Year
  Sex: Female
  Weight: 53 kg

DRUGS (12)
  1. FORTEO [Suspect]
     Indication: OSTEOPOROSIS
     Dosage: 20 UG, DAILY (1/D)
     Route: 058
     Dates: start: 20080122, end: 20080206
  2. FORTEO [Suspect]
     Dosage: 20 UG, DAILY (1/D)
     Route: 058
  3. ACTONEL [Concomitant]
     Dosage: 35 UNK, UNK
  4. CACIT D3 [Concomitant]
  5. DURAGESIC-100 [Concomitant]
  6. LASILIX [Concomitant]
  7. PERINDOPRIL ERBUMINE [Concomitant]
  8. NEXIUM [Concomitant]
  9. STABLON [Concomitant]
  10. HEXAQUINE [Concomitant]
  11. VICTAN [Concomitant]
  12. PARACETAMOL [Concomitant]

REACTIONS (1)
  - SUICIDE ATTEMPT [None]
